FAERS Safety Report 9758366 (Version 1)
Quarter: 2013Q4

REPORT INFORMATION
  Report Type: Spontaneous
  Country: BE (occurrence: BE)
  Receive Date: 20131216
  Receipt Date: 20131216
  Transmission Date: 20140711
  Serious: Yes (Death)
  Sender: FDA-Public Use
  Company Number: BE-PFIZER INC-2013356946

PATIENT
  Age: 73 Year
  Sex: Female

DRUGS (2)
  1. CISPLATIN [Suspect]
     Indication: SQUAMOUS CELL CARCINOMA
     Dosage: FOUR COURSES
  2. NAVELBINE [Suspect]
     Indication: SQUAMOUS CELL CARCINOMA
     Dosage: FOUR COURSES

REACTIONS (2)
  - Neutropenia [Fatal]
  - Bronchopulmonary aspergillosis [Fatal]
